FAERS Safety Report 9723048 (Version 2)
Quarter: 2014Q1

REPORT INFORMATION
  Report Type: Spontaneous
  Country: JP (occurrence: JP)
  Receive Date: 20131202
  Receipt Date: 20140129
  Transmission Date: 20141002
  Serious: Yes (Other)
  Sender: FDA-Public Use
  Company Number: JP-JNJFOC-20131117037

PATIENT
  Age: 71 Year
  Sex: Female

DRUGS (1)
  1. XARELTO [Suspect]
     Indication: PRODUCT USED FOR UNKNOWN INDICATION
     Route: 048
     Dates: start: 201307, end: 20131113

REACTIONS (3)
  - Colitis ulcerative [Unknown]
  - Large intestinal ulcer haemorrhage [Unknown]
  - Purpura [Unknown]
